FAERS Safety Report 20995480 (Version 1)
Quarter: 2022Q2

REPORT INFORMATION
  Report Type: Spontaneous
  Country: JP (occurrence: JP)
  Receive Date: 20220622
  Receipt Date: 20220622
  Transmission Date: 20220721
  Serious: Yes (Other)
  Sender: FDA-Public Use
  Company Number: JP-DSJP-DSJ-2022-121428

PATIENT
  Age: 70 Year
  Sex: Female

DRUGS (2)
  1. DENOSUMAB [Suspect]
     Active Substance: DENOSUMAB
     Indication: Osteoporosis
     Dosage: 60 MG, ONCE EVERY 6 MO
     Route: 058
     Dates: start: 202112
  2. CALCIUM CARBONATE\CHOLECALCIFEROL\MAGNESIUM CARBONATE [Concomitant]
     Active Substance: CALCIUM CARBONATE\CHOLECALCIFEROL\MAGNESIUM CARBONATE
     Dosage: 2 DF, QD, MORNING
     Route: 065
     Dates: start: 20220530

REACTIONS (6)
  - Pain in jaw [Not Recovered/Not Resolved]
  - Loose tooth [Not Recovered/Not Resolved]
  - Gingival swelling [Recovered/Resolved]
  - Osteitis [Not Recovered/Not Resolved]
  - Headache [Recovered/Resolved]
  - Headache [Not Recovered/Not Resolved]

NARRATIVE: CASE EVENT DATE: 20220201
